FAERS Safety Report 8196409-3 (Version None)
Quarter: 2012Q1

REPORT INFORMATION
  Report Type: 
  Country: None (occurrence: None)
  Receive Date: 20120307
  Receipt Date: 20120307
  Transmission Date: 20120608
  Serious: Yes (Other)
  Sender: FDA-Public Use
  Company Number: None

PATIENT
  Age: 22 Year
  Sex: Female
  Weight: 50.8029 kg

DRUGS (2)
  1. LISTERINE WHITENING VIBRANT WHITE PRE-BRUSH RINSE (ORAL CARE PRODUCTS) [Suspect]
     Indication: DENTAL CARE
     Dosage: , 2 IN 1 DAY, ORAL
     Route: 048
     Dates: start: 20111130
  2. LISTERINE WHITENING VIBRANT WHITE PRE-BRUSH RINSE (ORAL CARE PRODUCTS) [Suspect]
     Indication: DENTAL CARE
     Dosage: , 2 IN 1 DAY, ORAL
     Route: 048
     Dates: end: 20120111

REACTIONS (5)
  - STOMATITIS [None]
  - TONGUE DISCOLOURATION [None]
  - PRODUCT MEASURED POTENCY ISSUE [None]
  - TONGUE EXFOLIATION [None]
  - THERMAL BURN [None]
